FAERS Safety Report 9238494 (Version 1)
Quarter: 2013Q2

REPORT INFORMATION
  Report Type: Spontaneous
  Country: US (occurrence: US)
  Receive Date: 20130418
  Receipt Date: 20130418
  Transmission Date: 20140414
  Serious: No
  Sender: FDA-Public Use
  Company Number: US-009507513-1304USA007814

PATIENT
  Age: 79 Year
  Sex: Female

DRUGS (6)
  1. ZIOPTAN [Suspect]
     Indication: GLAUCOMA
     Dosage: SAMPLE DOSE, 1 DROP IN EACH EYE ONCE DAILY
     Route: 047
     Dates: start: 201303, end: 201303
  2. ZIOPTAN [Suspect]
     Dosage: 1 DROP IN EACH EYE ONCE DAILY
     Route: 047
     Dates: start: 201303, end: 20130414
  3. ZETIA [Concomitant]
  4. AMLODIPINE [Concomitant]
  5. INDERAL [Concomitant]
  6. KEPPRA [Concomitant]

REACTIONS (8)
  - Blood pressure increased [Recovering/Resolving]
  - Dry throat [Recovering/Resolving]
  - Insomnia [Recovering/Resolving]
  - Eyelid function disorder [Recovering/Resolving]
  - Cough [Recovering/Resolving]
  - Pruritus generalised [Recovering/Resolving]
  - Headache [Recovering/Resolving]
  - Vision blurred [Recovering/Resolving]
